FAERS Safety Report 8167851-1 (Version None)
Quarter: 2012Q1

REPORT INFORMATION
  Report Type: 
  Country: None (occurrence: None)
  Receive Date: 20120227
  Receipt Date: 20120214
  Transmission Date: 20120608
  Serious: Yes (Hospitalization)
  Sender: FDA-Public Use
  Company Number: GB-ROCHE-1040941

PATIENT
  Age: 42 Year
  Sex: Male
  Weight: 92.2 kg

DRUGS (6)
  1. MOVIPREP [Concomitant]
     Dosage: TDD 1 SACHET
     Dates: start: 20111027
  2. VEMURAFENIB [Suspect]
     Indication: METASTATIC MALIGNANT MELANOMA
     Dosage: DATE OF LAST DOSE PRIOR TO SAE 12 FEB 2012
     Route: 048
     Dates: start: 20120118, end: 20120213
  3. PIPERACILLIN AND TAZOBACTAM [Concomitant]
     Dates: start: 20110213
  4. PIPERACILLIN AND TAZOBACTAM [Concomitant]
     Dates: start: 20120213, end: 20120214
  5. MORPHINE SULFATE [Concomitant]
     Dates: start: 20110905
  6. DIAZEPAM [Concomitant]
     Dates: start: 20110406

REACTIONS (2)
  - DYSPNOEA [None]
  - HAEMOPTYSIS [None]
